FAERS Safety Report 18705179 (Version 2)
Quarter: 2021Q1

REPORT INFORMATION
  Report Type: Spontaneous
  Country: CH (occurrence: CH)
  Receive Date: 20210106
  Receipt Date: 20210111
  Transmission Date: 20210419
  Serious: Yes (Disabling)
  Sender: FDA-Public Use
  Company Number: CH-TEVA-2020-CH-1850079

PATIENT
  Age: 54 Year
  Sex: Male
  Weight: 76 kg

DRUGS (3)
  1. FLUOXETIN?MEPHA [Suspect]
     Active Substance: FLUOXETINE HYDROCHLORIDE
     Indication: DEPRESSION
     Dosage: 80 MILLIGRAM DAILY; OVER 15 YEARS
     Route: 048
  2. QUILONORM RETARD [Suspect]
     Active Substance: LITHIUM CARBONATE
     Indication: APATHY
     Dosage: 450 MILLIGRAM DAILY; FOR 15 YEARS
     Route: 048
  3. ABILIFY [Concomitant]
     Active Substance: ARIPIPRAZOLE
     Indication: APATHY
     Route: 065

REACTIONS (2)
  - Antidepressant drug level increased [Unknown]
  - Drug ineffective [Unknown]

NARRATIVE: CASE EVENT DATE: 201907
